FAERS Safety Report 6841355-8 (Version None)
Quarter: 2010Q3

REPORT INFORMATION
  Report Type: 
  Country: None (occurrence: None)
  Receive Date: 20100714
  Receipt Date: 20071220
  Transmission Date: 20110219
  Serious: No
  Sender: FDA-Public Use
  Company Number: US-PFIZER INC-2007051833

PATIENT
  Sex: Female
  Weight: 67.13 kg

DRUGS (6)
  1. CHANTIX [Suspect]
     Indication: SMOKING CESSATION THERAPY
     Route: 048
     Dates: start: 20070607
  2. CHANTIX [Suspect]
     Indication: NICOTINE DEPENDENCE
  3. KLONOPIN [Suspect]
     Dates: start: 20070620
  4. CLONAZEPAM [Concomitant]
  5. TRAZODONE HYDROCHLORIDE [Concomitant]
  6. LITHIUM [Concomitant]
     Dates: start: 20070607, end: 20070615

REACTIONS (8)
  - ABNORMAL BEHAVIOUR [None]
  - COORDINATION ABNORMAL [None]
  - DISTURBANCE IN ATTENTION [None]
  - MENTAL IMPAIRMENT [None]
  - NAUSEA [None]
  - NERVOUSNESS [None]
  - PSYCHOMOTOR HYPERACTIVITY [None]
  - SOMNOLENCE [None]
